FAERS Safety Report 4778595-8 (Version None)
Quarter: 2005Q3

REPORT INFORMATION
  Report Type: 
  Country: None (occurrence: None)
  Receive Date: 20050922
  Receipt Date: 20050908
  Transmission Date: 20060218
  Serious: Yes (Death, Hospitalization)
  Sender: FDA-Public Use
  Company Number: 11662

PATIENT
  Age: 71 Year
  Sex: Male

DRUGS (6)
  1. METHOTREXATE [Suspect]
     Indication: ANKYLOSING SPONDYLITIS
     Dosage: 25 MG WEEKLY PO
     Route: 048
     Dates: start: 19980610, end: 20050601
  2. ENBREL [Suspect]
     Indication: ANKYLOSING SPONDYLITIS
     Dosage: 25 MG 2/WK SC
     Route: 058
     Dates: start: 20050329, end: 20050601
  3. ACFOL [Concomitant]
  4. ADALAT [Concomitant]
  5. DACORTIN [Concomitant]
  6. OMEPRAZOLE [Concomitant]

REACTIONS (7)
  - ANAEMIA [None]
  - APLASIA [None]
  - BRONCHOPNEUMONIA [None]
  - HEPATOMEGALY [None]
  - LEUKOPENIA [None]
  - PANCYTOPENIA [None]
  - RESPIRATORY TRACT INFECTION [None]
